FAERS Safety Report 6535469-X (Version None)
Quarter: 2010Q1

REPORT INFORMATION
  Report Type: 
  Country: None (occurrence: None)
  Receive Date: 20100105
  Receipt Date: 20091221
  Transmission Date: 20100710
  Serious: Yes (Hospitalization)
  Sender: FDA-Public Use
  Company Number: 002783

PATIENT
  Sex: Female
  Weight: 55 kg

DRUGS (13)
  1. CERTOLIZUMAB PEGOL [Suspect]
     Indication: RHEUMATOID ARTHRITIS
     Dosage: 400 MG 1X/2 WEEKS SUBCUTANEOUS
     Route: 058
     Dates: start: 20091012, end: 20091214
  2. METHOTREXATE [Concomitant]
  3. PREDNISONE [Concomitant]
  4. NAPROSYN [Concomitant]
  5. PLAQUENIL [Concomitant]
  6. DARVOCET-N 100 [Concomitant]
  7. ASCORBIC ACID [Concomitant]
  8. CALCIFEROL [Concomitant]
  9. PROAIR HFA [Concomitant]
  10. ADVAIR [Concomitant]
  11. FLONASE [Concomitant]
  12. ALENDRONATE SODIUM [Concomitant]
  13. TRAVATAN [Concomitant]

REACTIONS (4)
  - CHEST PAIN [None]
  - HYPOTENSION [None]
  - PNEUMONIA [None]
  - SEPSIS [None]
